FAERS Safety Report 5086565-8 (Version None)
Quarter: 2006Q3

REPORT INFORMATION
  Report Type: 
  Country: None (occurrence: None)
  Receive Date: 20060823
  Receipt Date: 20060809
  Transmission Date: 20061208
  Serious: Yes (Life-Threatening, Other)
  Sender: FDA-Public Use
  Company Number: US-GLAXOSMITHKLINE-A0616017A

PATIENT
  Age: 75 Year
  Sex: Male
  Weight: 62.7 kg

DRUGS (7)
  1. MALARONE [Suspect]
     Indication: MALARIA
     Dosage: 250MG PER DAY
     Route: 048
     Dates: start: 20050101
  2. COUMADIN [Suspect]
     Indication: DRUG USE FOR UNKNOWN INDICATION
     Dosage: 5MG SEE DOSAGE TEXT
  3. VITAMIN [Concomitant]
  4. CALCIUM GLUCONATE [Concomitant]
  5. ATENOLOL [Concomitant]
     Dosage: 12.5MG PER DAY
  6. ALTACE [Concomitant]
     Dosage: 10MG PER DAY
  7. VITORIN [Concomitant]
     Dosage: 1TAB PER DAY

REACTIONS (1)
  - INTERNATIONAL NORMALISED RATIO INCREASED [None]
